FAERS Safety Report 9922491 (Version 7)
Quarter: 2016Q3

REPORT INFORMATION
  Report Type: Spontaneous
  Country: US (occurrence: US)
  Receive Date: 20140225
  Receipt Date: 20160721
  Transmission Date: 20161109
  Serious: Yes (Death, Hospitalization, Other)
  Sender: FDA-Public Use
  Company Number: US-ASTRAZENECA-2014SE12734

PATIENT
  Age: 53 Year
  Sex: Male
  Weight: 86.2 kg

DRUGS (38)
  1. CRESTOR [Suspect]
     Active Substance: ROSUVASTATIN CALCIUM
     Indication: BLOOD CHOLESTEROL INCREASED
     Route: 048
     Dates: start: 200401, end: 201105
  2. TOPROL XL [Concomitant]
     Active Substance: METOPROLOL SUCCINATE
     Dosage: 50.0MG UNKNOWN
     Dates: start: 20070209
  3. TYLENOL [Concomitant]
     Active Substance: ACETAMINOPHEN
     Dosage: 325.0MG UNKNOWN
     Route: 048
     Dates: start: 20110221
  4. BENADRYL [Concomitant]
     Active Substance: DIPHENHYDRAMINE HYDROCHLORIDE
     Dosage: 25.0MG UNKNOWN
     Route: 048
     Dates: start: 20110112
  5. CARDURA [Concomitant]
     Active Substance: DOXAZOSIN MESYLATE
     Dates: start: 20080505
  6. ALKA-SELTZER [Concomitant]
     Active Substance: ANHYDROUS CITRIC ACID\ASPIRIN\SODIUM BICARBONATE
  7. COREG [Concomitant]
     Active Substance: CARVEDILOL
     Dosage: 25.0MG UNKNOWN
     Dates: start: 2004, end: 2011
  8. PLAVIX [Concomitant]
     Active Substance: CLOPIDOGREL BISULFATE
     Route: 048
     Dates: start: 20110221
  9. UROXATRAL [Concomitant]
     Active Substance: ALFUZOSIN HYDROCHLORIDE
     Dates: start: 20110125
  10. PROTONIX [Concomitant]
     Active Substance: PANTOPRAZOLE SODIUM
     Route: 048
     Dates: start: 20070208
  11. TRAZADONE HCL [Concomitant]
     Active Substance: TRAZODONE HYDROCHLORIDE
     Route: 048
     Dates: start: 20110502
  12. NIACIN. [Concomitant]
     Active Substance: NIACIN
     Dates: start: 20040927
  13. CRESTOR [Suspect]
     Active Substance: ROSUVASTATIN CALCIUM
     Indication: BLOOD CHOLESTEROL INCREASED
     Route: 048
     Dates: start: 1988, end: 2011
  14. DILANTIN [Concomitant]
     Active Substance: PHENYTOIN
  15. CLARITIN [Concomitant]
     Active Substance: LORATADINE
     Route: 048
     Dates: start: 20110221
  16. KEFLEX [Concomitant]
     Active Substance: CEPHALEXIN
     Dates: start: 20061028
  17. CRESTOR [Suspect]
     Active Substance: ROSUVASTATIN CALCIUM
     Indication: BLOOD CHOLESTEROL INCREASED
     Route: 048
     Dates: start: 20031231
  18. TRICOR [Concomitant]
     Active Substance: FENOFIBRATE
     Dates: start: 20110125
  19. TAGAMET [Concomitant]
     Active Substance: CIMETIDINE
  20. HYDRALAZINE [Concomitant]
     Active Substance: HYDRALAZINE HYDROCHLORIDE
     Route: 048
     Dates: start: 20080505
  21. ASPIRIN. [Concomitant]
     Active Substance: ASPIRIN
     Dates: start: 20110125
  22. AUGMENTIN [Concomitant]
     Active Substance: AMOXICILLIN\CLAVULANATE POTASSIUM
     Route: 048
     Dates: start: 20070208
  23. COLACE [Concomitant]
     Active Substance: DOCUSATE SODIUM
     Route: 048
     Dates: start: 20070208
  24. LORAZEPAM. [Concomitant]
     Active Substance: LORAZEPAM
     Route: 048
     Dates: start: 20110502
  25. LEXAPRO [Concomitant]
     Active Substance: ESCITALOPRAM OXALATE
     Route: 048
     Dates: start: 20110502
  26. VASOTEC [Concomitant]
     Active Substance: ENALAPRIL MALEATE
     Dates: start: 20031215
  27. CRESTOR [Suspect]
     Active Substance: ROSUVASTATIN CALCIUM
     Indication: BLOOD CHOLESTEROL INCREASED
     Route: 048
     Dates: start: 20110125
  28. LANTUS [Concomitant]
     Active Substance: INSULIN GLARGINE
     Route: 058
     Dates: start: 20110221
  29. DULCOLAX NOS [Concomitant]
     Active Substance: BISACODYL OR DOCUSATE SODIUM
     Dosage: 10.0MG UNKNOWN
     Route: 048
     Dates: start: 20110221
  30. LOPERAMIDE [Concomitant]
     Active Substance: LOPERAMIDE
     Dosage: 2.0MG UNKNOWN
     Route: 048
     Dates: start: 20110112
  31. IMDUR [Concomitant]
     Active Substance: ISOSORBIDE MONONITRATE
     Dates: start: 20080312
  32. PROCRIT/EPOGEN [Concomitant]
     Dosage: 20000.0IU UNKNOWN
     Route: 058
     Dates: start: 20061028
  33. LISINOPRIL. [Concomitant]
     Active Substance: LISINOPRIL
     Route: 048
     Dates: start: 20110221
  34. PEPCID [Concomitant]
     Active Substance: FAMOTIDINE
     Route: 048
     Dates: start: 20110221
  35. SENNA [Concomitant]
     Active Substance: SENNA LEAF\SENNOSIDES\SENNOSIDES A AND B
     Dosage: TWO TABLETS
     Route: 048
     Dates: start: 20110221
  36. CLONIDINE. [Concomitant]
     Active Substance: CLONIDINE
     Dosage: 0.1MG UNKNOWN
     Route: 048
     Dates: start: 20110112
  37. LASIX [Concomitant]
     Active Substance: FUROSEMIDE
     Dates: start: 20031215
  38. AMLODIPINE [Concomitant]
     Active Substance: AMLODIPINE BESYLATE
     Dates: start: 20080505

REACTIONS (28)
  - Diabetic nephropathy [Unknown]
  - End stage renal disease [Unknown]
  - Cardiac failure congestive [Unknown]
  - Sepsis [Fatal]
  - Acute kidney injury [Unknown]
  - Respiratory failure [Unknown]
  - Ischaemic stroke [Unknown]
  - Diabetic neuropathy [Unknown]
  - Blood triglycerides increased [Unknown]
  - Hypertensive heart disease [Unknown]
  - Type 2 diabetes mellitus [Unknown]
  - Multiple organ dysfunction syndrome [Fatal]
  - Hepatic failure [Unknown]
  - Muscular weakness [Unknown]
  - Hypertension [Unknown]
  - Diabetic retinopathy [Unknown]
  - Gestational diabetes [Unknown]
  - Cardiovascular disorder [Unknown]
  - Coronary artery disease [Unknown]
  - Systemic candida [Fatal]
  - Injury [Unknown]
  - Arrhythmia [Unknown]
  - Cardiomyopathy [Unknown]
  - Syncope [Unknown]
  - Myocardial infarction [Fatal]
  - Acute myocardial infarction [Unknown]
  - Type 1 diabetes mellitus [Unknown]
  - Angina pectoris [Unknown]

NARRATIVE: CASE EVENT DATE: 2000
